FAERS Safety Report 6734733-9 (Version None)
Quarter: 2010Q2

REPORT INFORMATION
  Report Type: 
  Country: None (occurrence: None)
  Receive Date: 20100518
  Receipt Date: 20100518
  Transmission Date: 20101027
  Serious: Yes (Other)
  Sender: FDA-Public Use
  Company Number: None

PATIENT
  Age: 46 Year
  Sex: Female
  Weight: 75.2971 kg

DRUGS (1)
  1. METROGEL [Suspect]
     Indication: VAGINAL INFECTION
     Dosage: 1 APPLICATORFUL VAGINALLY BEDTIME FOR 5 NIGH VAG
     Route: 067
     Dates: start: 20091103, end: 20091107

REACTIONS (2)
  - ABDOMINAL PAIN [None]
  - INCORRECT ROUTE OF DRUG ADMINISTRATION [None]
